FAERS Safety Report 18253985 (Version 2)
Quarter: 2021Q1

REPORT INFORMATION
  Report Type: Spontaneous
  Country: US (occurrence: US)
  Receive Date: 20200910
  Receipt Date: 20210322
  Transmission Date: 20210419
  Serious: No
  Sender: FDA-Public Use
  Company Number: US-MICRO LABS LIMITED-ML2020-02564

PATIENT
  Age: 69 Year
  Sex: Female

DRUGS (1)
  1. DORZOLAMIDE/TIMOLOL [Suspect]
     Active Substance: DORZOLAMIDE\TIMOLOL
     Indication: GLAUCOMA
     Dosage: 22.3 MG/6.8 MG PER ML
     Route: 047

REACTIONS (3)
  - Product dose omission issue [Unknown]
  - Product container seal issue [Unknown]
  - Vision blurred [Unknown]
